FAERS Safety Report 22121472 (Version 1)
Quarter: 2023Q1

REPORT INFORMATION
  Report Type: Spontaneous
  Country: SE (occurrence: SE)
  Receive Date: 20230321
  Receipt Date: 20230321
  Transmission Date: 20230417
  Serious: Yes (Death, Other)
  Sender: FDA-Public Use
  Company Number: None

PATIENT
  Sex: Male
  Weight: 117 kg

DRUGS (6)
  1. OLANZAPINE [Suspect]
     Active Substance: OLANZAPINE
     Indication: Depression
     Dosage: 15 MILLIGRAM DAILY; 7.5 MG, 7.5 MG 2 TIMES DAILY
     Route: 065
     Dates: start: 2010
  2. OLANZAPINE [Suspect]
     Active Substance: OLANZAPINE
     Indication: Psychotic symptom
  3. ESCITALOPRAM [Concomitant]
     Active Substance: ESCITALOPRAM OXALATE
     Indication: Product used for unknown indication
     Dosage: 20 MILLIGRAM DAILY; 20 MG, 20 MG ONCE DAILY
     Dates: start: 2010
  4. LAMOTRIGINE [Concomitant]
     Active Substance: LAMOTRIGINE
     Indication: Product used for unknown indication
     Dosage: 200 MILLIGRAM DAILY; 100 MG, 100 MG 2 TIMES DAILY
     Dates: start: 2010
  5. Melatan [Concomitant]
     Indication: Product used for unknown indication
     Dosage: 3 MILLIGRAM DAILY; 3 MG, 3 MG 1 TO NIGHT
     Dates: start: 2015
  6. LITHIUM SULFATE [Concomitant]
     Active Substance: LITHIUM SULFATE
     Indication: Product used for unknown indication
     Dosage: 5 DOSAGE FORMS DAILY; 42 MG (6 MMOL), 3 IN THE MORNING, 2 IN THE EVENING, STRENGTH : 42 MG (6 MMOL),
     Dates: start: 2010

REACTIONS (3)
  - Obesity [Fatal]
  - Cardiac disorder [Fatal]
  - Weight increased [Fatal]

NARRATIVE: CASE EVENT DATE: 20100101
